FAERS Safety Report 10182842 (Version 2)
Quarter: 2014Q3

REPORT INFORMATION
  Report Type: Spontaneous
  Country: AU (occurrence: None)
  Receive Date: 20140516
  Receipt Date: 20140722
  Transmission Date: 20150326
  Serious: Yes (Life-Threatening, Hospitalization, Other)
  Sender: FDA-Public Use
  Company Number: AUR-APL-2014-05675

PATIENT
  Age: 0 Day
  Sex: Male

DRUGS (3)
  1. ESCITALOPRAM [Concomitant]
     Active Substance: ESCITALOPRAM OXALATE
  2. QUETIAPINE [Suspect]
     Active Substance: QUETIAPINE
     Indication: PRODUCT USED FOR UNKNOWN INDICATION
     Route: 064
  3. LAMOTRIGINE (LAMOTRIGINE) [Concomitant]
     Active Substance: LAMOTRIGINE

REACTIONS (6)
  - Breech presentation [None]
  - Manipulation [None]
  - Neonatal respiratory distress syndrome [None]
  - Contusion [None]
  - Maternal drugs affecting foetus [None]
  - Complication of delivery [None]

NARRATIVE: CASE EVENT DATE: 20120313
